FAERS Safety Report 18797451 (Version 1)
Quarter: 2021Q1

REPORT INFORMATION
  Report Type: Spontaneous
  Country: NL (occurrence: NL)
  Receive Date: 20210128
  Receipt Date: 20210128
  Transmission Date: 20210419
  Serious: Yes (Other)
  Sender: FDA-Public Use
  Company Number: NL-SUN PHARMACEUTICAL INDUSTRIES LTD-2021RR-277870

PATIENT
  Age: 57 Year
  Sex: Female
  Weight: 66 kg

DRUGS (3)
  1. ESCITALOPRAM TABLET 15MG / BRAND NAME NOT SPECIFIEDESCITALOPRAM TAB... [Concomitant]
     Indication: PRODUCT USED FOR UNKNOWN INDICATION
     Dosage: TABLET, 15 MG (MILLIGRAM), UNK
     Route: 065
  2. OLANZAPINE. [Suspect]
     Active Substance: OLANZAPINE
     Indication: SLEEP DISORDER
     Dosage: 15 MILLIGRAM, DAILY, 1 X DAILY ONE TABLET
     Route: 065
     Dates: start: 2012, end: 20200803
  3. PROMETHAZINE TABLET OMHULD 25MG / BRAND NAME NOT SPECIFIEDPROMETHAZ... [Concomitant]
     Indication: PRODUCT USED FOR UNKNOWN INDICATION
     Dosage: OMHULDE TABLET, 25 MG (MILLIGRAM), UNK
     Route: 065

REACTIONS (2)
  - Syncope [Recovered/Resolved]
  - Hypotension [Recovered/Resolved]

NARRATIVE: CASE EVENT DATE: 20200105
